FAERS Safety Report 23263327 (Version 3)
Quarter: 2023Q4

REPORT INFORMATION
  Report Type: Spontaneous
  Country: SK (occurrence: SK)
  Receive Date: 20231205
  Receipt Date: 20231228
  Transmission Date: 20240110
  Serious: Yes (Other)
  Sender: FDA-Public Use
  Company Number: SK-TAKEDA-2023TUS115251

PATIENT
  Sex: Male
  Weight: 62 kg

DRUGS (8)
  1. TEDUGLUTIDE [Suspect]
     Active Substance: TEDUGLUTIDE
     Indication: Short-bowel syndrome
     Dosage: UNK UNK, QD
     Route: 065
     Dates: start: 202302
  2. TEDUGLUTIDE [Suspect]
     Active Substance: TEDUGLUTIDE
     Indication: Short-bowel syndrome
     Dosage: UNK UNK, QD
     Route: 065
     Dates: start: 202302
  3. TEDUGLUTIDE [Suspect]
     Active Substance: TEDUGLUTIDE
     Indication: Short-bowel syndrome
     Dosage: UNK UNK, QD
     Route: 065
     Dates: start: 202302
  4. TEDUGLUTIDE [Suspect]
     Active Substance: TEDUGLUTIDE
     Indication: Short-bowel syndrome
     Dosage: UNK UNK, QD
     Route: 065
     Dates: start: 202302
  5. TEDUGLUTIDE [Suspect]
     Active Substance: TEDUGLUTIDE
     Indication: Small intestinal obstruction
     Dosage: UNK
     Route: 065
  6. TEDUGLUTIDE [Suspect]
     Active Substance: TEDUGLUTIDE
     Indication: Small intestinal obstruction
     Dosage: UNK
     Route: 065
  7. TEDUGLUTIDE [Suspect]
     Active Substance: TEDUGLUTIDE
     Indication: Small intestinal obstruction
     Dosage: UNK
     Route: 065
  8. TEDUGLUTIDE [Suspect]
     Active Substance: TEDUGLUTIDE
     Indication: Small intestinal obstruction
     Dosage: UNK
     Route: 065

REACTIONS (13)
  - Erectile dysfunction [Unknown]
  - Sepsis [Unknown]
  - Device related sepsis [Unknown]
  - Septic shock [Unknown]
  - Sexual dysfunction [Unknown]
  - Hunger [Unknown]
  - Weight decreased [Recovered/Resolved]
  - Faeces hard [Unknown]
  - Feeding disorder [Unknown]
  - Malaise [Unknown]
  - Withdrawal syndrome [Unknown]
  - Flushing [Unknown]
  - Decreased appetite [Recovered/Resolved]
